FAERS Safety Report 20914015 (Version 8)
Quarter: 2023Q1

REPORT INFORMATION
  Report Type: Report from Study
  Country: IL (occurrence: IL)
  Receive Date: 20220604
  Receipt Date: 20230223
  Transmission Date: 20230418
  Serious: Yes (Hospitalization)
  Sender: FDA-Public Use
  Company Number: IL-ABBVIE-22K-082-4420476-00

PATIENT
  Sex: Female

DRUGS (6)
  1. CARBIDOPA\LEVODOPA [Suspect]
     Active Substance: CARBIDOPA\LEVODOPA
     Indication: Parkinson^s disease
     Route: 050
     Dates: start: 20210613
  2. CARBIDOPA\LEVODOPA [Suspect]
     Active Substance: CARBIDOPA\LEVODOPA
     Dosage: MORNING DOSAGE(ML)  15.0, CONTINUOUS DOSAGE (ML/H)  3.6, EXTRA DOSAGE (ML)  1.5
     Route: 050
  3. CARBIDOPA\LEVODOPA [Suspect]
     Active Substance: CARBIDOPA\LEVODOPA
     Route: 050
  4. CARBIDOPA\LEVODOPA [Suspect]
     Active Substance: CARBIDOPA\LEVODOPA
     Route: 050
  5. CARBIDOPA\LEVODOPA [Suspect]
     Active Substance: CARBIDOPA\LEVODOPA
     Dosage: CONTINUOUS DOSAGE (ML/H) 3.6 INCREASED
     Route: 050
  6. ENSURE [Concomitant]
     Active Substance: AMINO ACIDS\DEXTROSE\ELECTROLYTES NOS\SOYBEAN OIL\VITAMINS
     Indication: Nutritional supplementation
     Dosage: GIVEN VIA THE PEG^S GASTRIC OPENING
     Route: 065
     Dates: start: 202205

REACTIONS (21)
  - Persecutory delusion [Not Recovered/Not Resolved]
  - Gastrointestinal disorder [Unknown]
  - Decubitus ulcer [Unknown]
  - Constipation [Recovering/Resolving]
  - Dyspepsia [Unknown]
  - Hallucination [Unknown]
  - Incorrect route of product administration [Unknown]
  - Muscle spasticity [Unknown]
  - Muscle rigidity [Unknown]
  - Pain [Recovering/Resolving]
  - On and off phenomenon [Recovering/Resolving]
  - Therapeutic product effect decreased [Unknown]
  - Device occlusion [Recovered/Resolved]
  - Arthralgia [Unknown]
  - Back pain [Unknown]
  - Dyskinesia [Unknown]
  - Device issue [Recovered/Resolved]
  - Device loosening [Unknown]
  - Hallucination [Recovered/Resolved]
  - Wound complication [Unknown]
  - Eructation [Unknown]
